FAERS Safety Report 23043190 (Version 1)
Quarter: 2023Q4

REPORT INFORMATION
  Report Type: Spontaneous
  Country: US (occurrence: US)
  Receive Date: 20231009
  Receipt Date: 20231009
  Transmission Date: 20240109
  Serious: No
  Sender: FDA-Public Use
  Company Number: US-STRIDES ARCOLAB LIMITED-2023SP012612

PATIENT
  Sex: Female

DRUGS (3)
  1. BUSPIRONE HYDROCHLORIDE [Suspect]
     Active Substance: BUSPIRONE HYDROCHLORIDE
     Indication: Gastrointestinal disorder
     Dosage: 1 TABLETS PER DAY (TABLET)
     Route: 048
     Dates: start: 20230713, end: 20230716
  2. BUSPIRONE HYDROCHLORIDE [Suspect]
     Active Substance: BUSPIRONE HYDROCHLORIDE
     Dosage: UNK BUSPIRONE 5 MG (OTHER BRAND)
     Route: 065
  3. BUSPIRONE HYDROCHLORIDE [Suspect]
     Active Substance: BUSPIRONE HYDROCHLORIDE
     Dosage: UNK BUSPIRONE 5 MG
     Route: 065

REACTIONS (5)
  - Hangover [Recovered/Resolved]
  - Disorientation [Recovered/Resolved]
  - Autonomic nervous system imbalance [Recovered/Resolved]
  - Dizziness [Recovered/Resolved]
  - Off label use [Unknown]

NARRATIVE: CASE EVENT DATE: 20230714
